FAERS Safety Report 11010238 (Version 3)
Quarter: 2015Q3

REPORT INFORMATION
  Report Type: Spontaneous
  Country: US (occurrence: US)
  Receive Date: 20150410
  Receipt Date: 20150714
  Transmission Date: 20151125
  Serious: Yes (Death, Hospitalization, Other)
  Sender: FDA-Public Use
  Company Number: US-MERCK-1504USA003817

PATIENT
  Sex: Female
  Weight: 88.89 kg

DRUGS (4)
  1. BYDUREON [Suspect]
     Active Substance: EXENATIDE
     Indication: TYPE 2 DIABETES MELLITUS
     Dosage: 1 DF, QW
     Dates: start: 20120829
  2. VICTOZA [Suspect]
     Active Substance: LIRAGLUTIDE
     Indication: TYPE 2 DIABETES MELLITUS
     Dosage: 3 ML, QD
     Dates: start: 20100806, end: 20110310
  3. JANUVIA [Suspect]
     Active Substance: SITAGLIPTIN PHOSPHATE
     Indication: TYPE 2 DIABETES MELLITUS
     Dosage: 100 MG, QD
     Route: 048
     Dates: start: 20070128, end: 20100225
  4. BYETTA [Suspect]
     Active Substance: EXENATIDE
     Indication: TYPE 2 DIABETES MELLITUS
     Dosage: 10 MICROGRAM, BID
     Dates: start: 20051112, end: 20061231

REACTIONS (35)
  - Pancreatic carcinoma metastatic [Fatal]
  - Metastatic neoplasm [Unknown]
  - Pulmonary embolism [Unknown]
  - Sciatica [Unknown]
  - Chronic obstructive pulmonary disease [Unknown]
  - Portal vein thrombosis [Unknown]
  - Hypocalcaemia [Recovered/Resolved]
  - Bronchitis [Unknown]
  - Deep vein thrombosis [Unknown]
  - Pulmonary mass [Unknown]
  - Tachycardia [Unknown]
  - Lung disorder [Unknown]
  - Dehydration [Unknown]
  - Leukocytosis [Unknown]
  - Hypoglycaemia [Unknown]
  - Hypercholesterolaemia [Unknown]
  - Hypoxia [Unknown]
  - Hypothyroidism [Unknown]
  - Carpal tunnel decompression [Unknown]
  - Hypertension [Unknown]
  - Vascular operation [Unknown]
  - Cerebrovascular accident [Unknown]
  - Metastases to liver [Unknown]
  - Respiratory distress [Unknown]
  - Deep vein thrombosis [Unknown]
  - Adrenal disorder [Unknown]
  - Atelectasis [Unknown]
  - Cataract operation [Unknown]
  - Lymphadenopathy [Unknown]
  - Radiotherapy [Unknown]
  - Inguinal hernia [Unknown]
  - Platelet count decreased [Unknown]
  - Generalised oedema [Unknown]
  - Lung infiltration [Unknown]
  - Insulin-requiring type 2 diabetes mellitus [Unknown]

NARRATIVE: CASE EVENT DATE: 2013
